FAERS Safety Report 20420232 (Version 2)
Quarter: 2022Q2

REPORT INFORMATION
  Report Type: Report from Study
  Country: CA (occurrence: CA)
  Receive Date: 20220203
  Receipt Date: 20220407
  Transmission Date: 20220721
  Serious: Yes (Other)
  Sender: FDA-Public Use
  Company Number: CA-JNJFOC-20211207573

PATIENT
  Age: 72 Year
  Sex: Male
  Weight: 101 kg

DRUGS (3)
  1. REMICADE [Suspect]
     Active Substance: INFLIXIMAB
     Indication: Psoriatic arthropathy
     Dosage: REMICADE-2008 TO PRESENT, 115 DOSES
     Route: 042
     Dates: start: 20060425
  2. METHOTREXATE [Concomitant]
     Active Substance: METHOTREXATE
     Indication: Psoriatic arthropathy
     Route: 065
  3. METHOTREXATE [Concomitant]
     Active Substance: METHOTREXATE
     Indication: Rheumatoid arthritis

REACTIONS (2)
  - Non-Hodgkin^s lymphoma [Unknown]
  - Myalgia [Unknown]

NARRATIVE: CASE EVENT DATE: 20211102
